FAERS Safety Report 21905980 (Version 1)
Quarter: 2023Q1

REPORT INFORMATION
  Report Type: Spontaneous
  Country: IQ (occurrence: IQ)
  Receive Date: 20230124
  Receipt Date: 20230124
  Transmission Date: 20230418
  Serious: Yes (Other)
  Sender: FDA-Public Use
  Company Number: IQ-SUN PHARMACEUTICAL INDUSTRIES LTD-2023R1-374097

PATIENT
  Age: 18 Year
  Sex: Female

DRUGS (1)
  1. DEXAMETHASONE [Suspect]
     Active Substance: DEXAMETHASONE
     Indication: Product used for unknown indication
     Dosage: 8 MILLIGRAM
     Route: 065

REACTIONS (1)
  - Dexamethasone suppression test positive [Unknown]
